FAERS Safety Report 8170289-4 (Version None)
Quarter: 2012Q1

REPORT INFORMATION
  Report Type: 
  Country: None (occurrence: None)
  Receive Date: 20120228
  Receipt Date: 20120223
  Transmission Date: 20120608
  Serious: Yes (Hospitalization, Other)
  Sender: FDA-Public Use
  Company Number: PHHY2012NL012973

PATIENT
  Sex: Male
  Weight: 90 kg

DRUGS (4)
  1. AMLODIPINE [Concomitant]
     Indication: HYPERTENSION
     Dosage: 10 MG, QD
     Dates: start: 20090903
  2. PREDNISOLONE [Concomitant]
     Dosage: 40 MG, DAILY
  3. CALCIUM CHANNEL BLOCKERS [Concomitant]
  4. DIOVAN [Suspect]
     Indication: HYPERTENSION
     Dosage: 1 DF, DAILY (160 MG)
     Route: 048
     Dates: start: 20090709, end: 20091110

REACTIONS (2)
  - RENAL EMBOLISM [None]
  - RENAL FAILURE [None]
